FAERS Safety Report 8121613-X (Version None)
Quarter: 2012Q1

REPORT INFORMATION
  Report Type: 
  Country: None (occurrence: None)
  Receive Date: 20120203
  Receipt Date: 20111213
  Transmission Date: 20120608
  Serious: Yes (Hospitalization)
  Sender: FDA-Public Use
  Company Number: AT-006807

PATIENT
  Age: 78 Year
  Sex: Male

DRUGS (14)
  1. CALCIUM [Concomitant]
  2. MADOPAR [Concomitant]
  3. DIAZEPAM [Concomitant]
  4. NORVASC [Concomitant]
  5. ATACAND [Concomitant]
  6. PANTOLOC /01263202/ [Concomitant]
  7. LEVOTHYROXINE SODIUM [Concomitant]
  8. OLEOVIT /02342201/ [Concomitant]
  9. FLUTICASONE PROPIONATE/SALMETEROL [Concomitant]
  10. SIMVASTATIN [Concomitant]
  11. FIRMAGON [Suspect]
     Indication: PROSTATE CANCER
     Dosage: (240 MG 1X SUBCUTANEOUS), (80 MG 1X/MONTH SUBCUTANEOUS)
     Route: 058
     Dates: start: 20110901
  12. FIRMAGON [Suspect]
     Indication: PROSTATE CANCER
     Dosage: (240 MG 1X SUBCUTANEOUS), (80 MG 1X/MONTH SUBCUTANEOUS)
     Route: 058
     Dates: start: 20110801, end: 20110801
  13. ASPIRIN [Concomitant]
  14. SELOKEN /00376903/ [Concomitant]

REACTIONS (6)
  - ASTHENIA [None]
  - NAUSEA [None]
  - PALPITATIONS [None]
  - FATIGUE [None]
  - ARRHYTHMIA [None]
  - MENTAL DISORDER [None]
